FAERS Safety Report 9318648 (Version 2)
Quarter: 2013Q2

REPORT INFORMATION
  Report Type: Spontaneous
  Country: CZ (occurrence: None)
  Receive Date: 20130523
  Receipt Date: 20130618
  Transmission Date: 20140414
  Serious: Yes (Other)
  Sender: FDA-Public Use
  Company Number: CZ-1198270

PATIENT
  Age: 78 Year
  Sex: Female

DRUGS (3)
  1. BETOPTIC S [Suspect]
     Indication: GLAUCOMA
     Route: 047
     Dates: start: 20130501, end: 20130504
  2. DORMICUM [Concomitant]
  3. HYALURONIC ACID [Concomitant]

REACTIONS (3)
  - Visual acuity reduced [None]
  - Vision blurred [None]
  - Product quality issue [None]
